APPROVED DRUG PRODUCT: CAPECITABINE
Active Ingredient: CAPECITABINE
Strength: 500MG
Dosage Form/Route: TABLET;ORAL
Application: A090943 | Product #002 | TE Code: AB
Applicant: RISING PHARMA HOLDING INC
Approved: Aug 8, 2014 | RLD: No | RS: No | Type: RX